FAERS Safety Report 6247388-7 (Version None)
Quarter: 2009Q2

REPORT INFORMATION
  Report Type: 
  Country: None (occurrence: None)
  Receive Date: 20090626
  Receipt Date: 20090616
  Transmission Date: 20091009
  Serious: Yes (Hospitalization)
  Sender: FDA-Public Use
  Company Number: B0580596A

PATIENT
  Sex: Female
  Weight: 60 kg

DRUGS (3)
  1. DEROXAT [Suspect]
     Indication: DRUG USE FOR UNKNOWN INDICATION
     Dosage: 80MG PER DAY
     Route: 048
     Dates: start: 20090530, end: 20090530
  2. QUILONORM [Suspect]
     Indication: DRUG USE FOR UNKNOWN INDICATION
     Dosage: 27G PER DAY
     Route: 048
     Dates: start: 20090530, end: 20090530
  3. TEMESTA [Suspect]
     Indication: DRUG USE FOR UNKNOWN INDICATION
     Route: 048

REACTIONS (6)
  - CONDITION AGGRAVATED [None]
  - DRUG LEVEL INCREASED [None]
  - HEPATOCELLULAR INJURY [None]
  - INTENTIONAL OVERDOSE [None]
  - PANCREATITIS [None]
  - SOMNOLENCE [None]
